FAERS Safety Report 20850546 (Version 1)
Quarter: 2022Q2

REPORT INFORMATION
  Report Type: Spontaneous
  Country: US (occurrence: None)
  Receive Date: 20220518
  Receipt Date: 20220518
  Transmission Date: 20220721
  Serious: Yes (Other)
  Sender: FDA-Public Use
  Company Number: None

PATIENT
  Age: 78 Year
  Sex: Male

DRUGS (7)
  1. ABIRATERONE [Suspect]
     Active Substance: ABIRATERONE
     Indication: Prostate cancer
     Dosage: FREQUENCY : DAILY;?
     Route: 048
     Dates: start: 20200903, end: 20220518
  2. ALLOPURINOL [Concomitant]
     Active Substance: ALLOPURINOL
     Dates: start: 20200726
  3. ATENOLOL [Concomitant]
     Active Substance: ATENOLOL
     Dates: start: 20201207
  4. PRAVASTATIN [Concomitant]
     Active Substance: PRAVASTATIN
     Dates: start: 20201124
  5. PREDNISONE [Concomitant]
     Active Substance: PREDNISONE
     Dates: start: 20201229
  6. Flomax 0.4mg [Concomitant]
     Dates: start: 20220317
  7. XARELTO [Concomitant]
     Active Substance: RIVAROXABAN
     Dates: start: 20200909

REACTIONS (2)
  - Drug ineffective [None]
  - Malignant neoplasm progression [None]

NARRATIVE: CASE EVENT DATE: 20220518
